FAERS Safety Report 6963904-1 (Version None)
Quarter: 2010Q3

REPORT INFORMATION
  Report Type: 
  Country: None (occurrence: None)
  Receive Date: 20100831
  Receipt Date: 20100816
  Transmission Date: 20110219
  Serious: Yes (Death, Other)
  Sender: FDA-Public Use
  Company Number: 010714

PATIENT

DRUGS (17)
  1. BUSULFEX [Suspect]
     Dosage: SEE IMAGE
  2. BUSULFEX [Suspect]
     Dosage: SEE IMAGE
  3. BUSULFEX [Suspect]
     Dosage: SEE IMAGE
  4. BUSULFEX [Suspect]
     Dosage: SEE IMAGE
  5. CYCLOPHOSPHAMIDE [Concomitant]
  6. THIOTEPA [Concomitant]
  7. THYMOGLOBULIN [Concomitant]
  8. AZATHIOPRINE [Concomitant]
  9. HYDROXYUREA [Concomitant]
  10. FLUDARABINE PHOSPHATE [Concomitant]
  11. CYCLOSPORINE [Concomitant]
  12. METHYLPREDNISOLONE [Concomitant]
  13. METHOTREXATE [Concomitant]
  14. VALPROIC ACID [Concomitant]
  15. GRANISETRON (GRANISETRON) [Concomitant]
  16. ANTIBIOTICS [Concomitant]
  17. AMPHOTERICIN B [Concomitant]

REACTIONS (11)
  - ACUTE GRAFT VERSUS HOST DISEASE [None]
  - ASPERGILLOSIS [None]
  - BACTERAEMIA [None]
  - CHRONIC GRAFT VERSUS HOST DISEASE [None]
  - CYSTITIS HAEMORRHAGIC [None]
  - CYTOMEGALOVIRUS INFECTION [None]
  - DIARRHOEA [None]
  - NEUROTOXICITY [None]
  - STOMATITIS [None]
  - TRANSPLANT REJECTION [None]
  - VENOOCCLUSIVE LIVER DISEASE [None]
